FAERS Safety Report 9701641 (Version 1)
Quarter: 2013Q4

REPORT INFORMATION
  Report Type: Report from Study
  Country: US (occurrence: US)
  Receive Date: 20131121
  Receipt Date: 20131121
  Transmission Date: 20140711
  Serious: Yes (Hospitalization)
  Sender: FDA-Public Use
  Company Number: US-JNJFOC-20131109777

PATIENT
  Age: 56 Year
  Sex: Male
  Weight: 83.92 kg

DRUGS (3)
  1. REMICADE [Suspect]
     Indication: PSORIATIC ARTHROPATHY
     Route: 042
     Dates: start: 20070702, end: 201303
  2. REMICADE [Suspect]
     Indication: PSORIATIC ARTHROPATHY
     Route: 042
     Dates: start: 201307, end: 201307
  3. CORTICOSTEROIDS [Concomitant]
     Route: 065

REACTIONS (1)
  - Acute myocardial infarction [Recovered/Resolved]
